FAERS Safety Report 24043878 (Version 2)
Quarter: 2024Q3

REPORT INFORMATION
  Report Type: Spontaneous
  Country: IE (occurrence: IE)
  Receive Date: 20240703
  Receipt Date: 20240722
  Transmission Date: 20241016
  Serious: Yes (Other)
  Sender: CELLTRION
  Company Number: IE-CELLTRION INC.-2024IE015749

PATIENT

DRUGS (2)
  1. ADALIMUMAB [Suspect]
     Active Substance: ADALIMUMAB\ISOPROPYL ALCOHOL
     Indication: Hidradenitis
     Dosage: DOSAGE1: UNIT=NOT AVAILABLE
     Route: 065
     Dates: start: 201706, end: 202109
  2. ADALIMUMAB [Suspect]
     Active Substance: ADALIMUMAB\ISOPROPYL ALCOHOL
     Indication: Hidradenitis
     Dosage: DOSAGE1: UNIT=NOT AVAILABLE
     Route: 065
     Dates: start: 201706, end: 202109

REACTIONS (6)
  - Congestive hepatopathy [Unknown]
  - Pericarditis constrictive [Recovered/Resolved]
  - Hepatic cirrhosis [Unknown]
  - Right ventricular failure [Recovered/Resolved]
  - N-terminal prohormone brain natriuretic peptide increased [Unknown]
  - Diastolic dysfunction [Recovered/Resolved]
